FAERS Safety Report 15332672 (Version 1)
Quarter: 2018Q3

REPORT INFORMATION
  Report Type: Spontaneous
  Country: PK (occurrence: PK)
  Receive Date: 20180830
  Receipt Date: 20180830
  Transmission Date: 20181010
  Serious: Yes (Other)
  Sender: FDA-Public Use
  Company Number: PK-BRISTOL-MYERS SQUIBB COMPANY-BMS-2018-079121

PATIENT
  Age: 11 Month
  Sex: Male
  Weight: 27 kg

DRUGS (1)
  1. TRIAMCINOLONE ACETONIDE. [Suspect]
     Active Substance: TRIAMCINOLONE ACETONIDE
     Indication: RASH
     Route: 061

REACTIONS (10)
  - Metabolic alkalosis [Unknown]
  - Total lung capacity abnormal [Unknown]
  - Liver function test abnormal [Unknown]
  - Hypocalcaemia [Unknown]
  - Hypernatraemia [Unknown]
  - Hepatomegaly [Unknown]
  - Cushing^s syndrome [Recovered/Resolved]
  - Blood glucose abnormal [Unknown]
  - Neutrophilia [Unknown]
  - Ascites [Unknown]
